FAERS Safety Report 7841619-5 (Version None)
Quarter: 2011Q4

REPORT INFORMATION
  Report Type: 
  Country: None (occurrence: None)
  Receive Date: 20111025
  Receipt Date: 20111013
  Transmission Date: 20120403
  Serious: Yes (Other)
  Sender: FDA-Public Use
  Company Number: US-US-EMD SERONO, INC.-7089642

PATIENT
  Sex: Female

DRUGS (3)
  1. KLONOPIN [Concomitant]
     Indication: BALANCE DISORDER
     Dates: end: 20110101
  2. REBIF [Suspect]
     Indication: MULTIPLE SCLEROSIS
     Route: 058
     Dates: start: 20101115
  3. KLONOPIN [Concomitant]
     Dates: start: 20110101

REACTIONS (3)
  - OPTIC NEURITIS [None]
  - FALL [None]
  - TEARFULNESS [None]
